FAERS Safety Report 8478307-0 (Version None)
Quarter: 2012Q2

REPORT INFORMATION
  Report Type: 
  Country: None (occurrence: None)
  Receive Date: 20120629
  Receipt Date: 20120625
  Transmission Date: 20120825
  Serious: Yes (Hospitalization)
  Sender: FDA-Public Use
  Company Number: US-PFIZER INC-2012152311

PATIENT
  Sex: Female
  Weight: 61.224 kg

DRUGS (5)
  1. CHAPSTICK CLASSIC [Suspect]
     Dosage: UNK, AS NEEDED
     Dates: start: 20120101
  2. CHAPSTICK CLASSIC [Suspect]
     Indication: LIP DRY
     Dosage: UNK, AS NEEDED
  3. CHAPSTICK CLASSIC [Suspect]
     Dosage: UNK, AS NEEDED
     Dates: start: 20120101, end: 20120101
  4. SYNTHROID [Concomitant]
     Dosage: 100 UG, DAILY
     Route: 048
  5. CHAPSTICK CLASSIC [Suspect]
     Dosage: UNK, AS NEEDED
     Dates: start: 20120601, end: 20120601

REACTIONS (3)
  - ABDOMINAL PAIN UPPER [None]
  - CHEILITIS [None]
  - LIP SWELLING [None]
